FAERS Safety Report 10026610 (Version 1)
Quarter: 2014Q1

REPORT INFORMATION
  Report Type: Spontaneous
  Country: US (occurrence: US)
  Receive Date: 20140321
  Receipt Date: 20140321
  Transmission Date: 20141002
  Serious: No
  Sender: FDA-Public Use
  Company Number: US-BIOGENIDEC-2014BI026315

PATIENT
  Age: 58 Year
  Sex: Female

DRUGS (22)
  1. AVONEX [Suspect]
     Indication: MULTIPLE SCLEROSIS
     Route: 030
     Dates: start: 20090420
  2. ABILIFY [Concomitant]
  3. ADVAIR DISKUS [Concomitant]
  4. ALPRAZOLAM [Concomitant]
  5. AMANTADINE HCL [Concomitant]
  6. AMITRIPTYLINE HCL [Concomitant]
  7. BACLOFEN [Concomitant]
  8. CELEBREX [Concomitant]
  9. EXFORGE [Concomitant]
  10. FLUOXETINE HCL [Concomitant]
  11. FLUTICASONE PROPIONATE [Concomitant]
  12. GABAPENTIN [Concomitant]
  13. HYDROCODONE-ACETAMINOPHEN [Concomitant]
  14. LEVAQUIN [Concomitant]
  15. LIPITOR [Concomitant]
  16. LUNESTA [Concomitant]
  17. NORCO [Concomitant]
  18. OMEPRAZOLE [Concomitant]
  19. PERCOCET [Concomitant]
  20. PROZAC [Concomitant]
  21. TYLENOL PM EXTRA STRENGTH [Concomitant]
  22. XANAX [Concomitant]

REACTIONS (1)
  - Injection site haemorrhage [Unknown]
